FAERS Safety Report 9272029 (Version 1)
Quarter: 2013Q2

REPORT INFORMATION
  Report Type: Spontaneous
  Country: US (occurrence: US)
  Receive Date: 20130506
  Receipt Date: 20130506
  Transmission Date: 20140414
  Serious: No
  Sender: FDA-Public Use
  Company Number: US-B.I. PHARMACEUTICALS,INC./RIDGEFIELD-2013-BI-12047BP

PATIENT
  Age: 77 Year
  Sex: Male
  Weight: 107 kg

DRUGS (16)
  1. SPIRIVA [Suspect]
     Indication: ASTHMA
     Dosage: 18 MCG
     Route: 055
     Dates: start: 201211
  2. SPIRIVA [Suspect]
     Indication: CHRONIC OBSTRUCTIVE PULMONARY DISEASE
  3. SPIRIVA [Suspect]
     Indication: BRONCHITIS
  4. COMBIVENT [Suspect]
     Indication: ASTHMA
     Dosage: STRENGTH: 18 MCG / 103 MCG; DAILY DOSE: 144 MCG / 824 MCG
     Route: 055
     Dates: start: 2009, end: 201211
  5. COMBIVENT [Suspect]
     Indication: CHRONIC OBSTRUCTIVE PULMONARY DISEASE
     Dosage: STRENGTH: 18 MCG / 103 MCG
     Route: 055
     Dates: start: 201211
  6. COMBIVENT [Suspect]
     Indication: BRONCHITIS
  7. DIGOXIN [Concomitant]
     Indication: ATRIAL FIBRILLATION
  8. ALLOPURINOL [Concomitant]
     Indication: GOUT
  9. WARFARIN [Concomitant]
     Indication: ATRIAL FIBRILLATION
  10. LISINOPRIL [Concomitant]
     Indication: HYPERTENSION
  11. ADVAIR [Concomitant]
     Indication: ASTHMA
     Route: 055
  12. ADVAIR [Concomitant]
     Indication: CHRONIC OBSTRUCTIVE PULMONARY DISEASE
  13. ADVAIR [Concomitant]
     Indication: BRONCHITIS
  14. BYSTOLIC [Concomitant]
     Indication: ATRIAL FIBRILLATION
  15. FUROSEMIDE [Concomitant]
     Indication: HYPERTENSION
  16. TEKTURNA [Concomitant]
     Indication: HYPERTENSION

REACTIONS (2)
  - Incorrect dose administered [Not Recovered/Not Resolved]
  - Gait disturbance [Not Recovered/Not Resolved]
